FAERS Safety Report 16729292 (Version 1)
Quarter: 2019Q3

REPORT INFORMATION
  Report Type: Spontaneous
  Country: US (occurrence: US)
  Receive Date: 20190705
  Receipt Date: 20190705
  Transmission Date: 20191005
  Serious: No
  Sender: FDA-Public Use
  Company Number: None

PATIENT
  Age: 71 Year
  Sex: Female

DRUGS (1)
  1. SUTENT [Suspect]
     Active Substance: SUNITINIB MALATE
     Route: 048
     Dates: start: 201810

REACTIONS (4)
  - Dysuria [None]
  - Stomatitis [None]
  - Dyschezia [None]
  - Feeling abnormal [None]

NARRATIVE: CASE EVENT DATE: 20190705
